FAERS Safety Report 22738415 (Version 2)
Quarter: 2023Q4

REPORT INFORMATION
  Report Type: Spontaneous
  Country: US (occurrence: US)
  Receive Date: 20230721
  Receipt Date: 20231002
  Transmission Date: 20240110
  Serious: Yes (Hospitalization)
  Sender: FDA-Public Use
  Company Number: US-PFIZER INC-PV202300046306

PATIENT
  Age: 72 Year
  Sex: Female
  Weight: 95.238 kg

DRUGS (3)
  1. IBRANCE [Suspect]
     Active Substance: PALBOCICLIB
     Indication: Bone cancer
     Dosage: 125 MG
  2. IBRANCE [Suspect]
     Active Substance: PALBOCICLIB
     Dosage: 100 MG
  3. IBRANCE [Suspect]
     Active Substance: PALBOCICLIB
     Dosage: 20 MG, 1X/DAY
     Dates: start: 202303

REACTIONS (6)
  - Full blood count abnormal [Recovered/Resolved]
  - Fatigue [Unknown]
  - Stomatitis [Unknown]
  - Constipation [Unknown]
  - Off label use [Unknown]
  - Off label use [Unknown]
